FAERS Safety Report 5373345-9 (Version None)
Quarter: 2007Q2

REPORT INFORMATION
  Report Type: 
  Country: None (occurrence: None)
  Receive Date: 20070628
  Receipt Date: 20070323
  Transmission Date: 20071010
  Serious: No
  Sender: FDA-Public Use
  Company Number: US-BRISTOL-MYERS SQUIBB COMPANY-13725379

PATIENT
  Sex: Female
  Weight: 63 kg

DRUGS (4)
  1. HALOG-E [Suspect]
     Indication: HYPERSENSITIVITY
  2. KEFLEX [Concomitant]
  3. EFFEXOR [Concomitant]
  4. ASPIRIN [Concomitant]

REACTIONS (1)
  - DRUG INEFFECTIVE [None]
